FAERS Safety Report 4356458-X (Version None)
Quarter: 2004Q2

REPORT INFORMATION
  Report Type: 
  Country: None (occurrence: None)
  Receive Date: 20040507
  Receipt Date: 20040423
  Transmission Date: 20050107
  Serious: Yes (Hospitalization)
  Sender: FDA-Public Use
  Company Number: 28300

PATIENT
  Age: 22 Month

DRUGS (1)
  1. TRIFLURIDINE [Suspect]

REACTIONS (3)
  - EAR DISCOMFORT [None]
  - EAR OPERATION [None]
  - MEDICATION ERROR [None]
